FAERS Safety Report 9261515 (Version 1)
Quarter: 2013Q2

REPORT INFORMATION
  Report Type: Spontaneous
  Country: CA (occurrence: CA)
  Receive Date: 20130429
  Receipt Date: 20130429
  Transmission Date: 20140414
  Serious: Yes (Other)
  Sender: FDA-Public Use
  Company Number: PHHY2013CA041223

PATIENT
  Age: 36 Year
  Sex: Female

DRUGS (4)
  1. RIBAVIRIN [Suspect]
     Indication: HEPATITIS C
  2. PEGINTERFERON ALFA-2A [Suspect]
     Indication: HEPATITIS C
  3. PEGINTERFERON ALFA-2A [Suspect]
  4. PEGINTERFERON ALFA-2B [Suspect]
     Indication: HEPATITIS C

REACTIONS (4)
  - Hepatic cirrhosis [Unknown]
  - Portal hypertension [Unknown]
  - No therapeutic response [Unknown]
  - Drug ineffective [Unknown]
